FAERS Safety Report 13699413 (Version 1)
Quarter: 2017Q2

REPORT INFORMATION
  Report Type: Spontaneous
  Country: ES (occurrence: ES)
  Receive Date: 20170628
  Receipt Date: 20170628
  Transmission Date: 20170830
  Serious: Yes (Hospitalization)
  Sender: FDA-Public Use
  Company Number: PHHY2017ES090263

PATIENT
  Age: 89 Year
  Sex: Male

DRUGS (3)
  1. RIMACTAN [Suspect]
     Active Substance: RIFAMPIN
     Indication: INFECTION
     Dosage: 600 MG, QD
     Route: 048
     Dates: start: 20170407
  2. ATORVASTATIN [Interacting]
     Active Substance: ATORVASTATIN
     Indication: HYPERLIPIDAEMIA
     Dosage: UNK UNK, QD
     Route: 048
     Dates: start: 2014
  3. LEVOFLOXACIN. [Interacting]
     Active Substance: LEVOFLOXACIN
     Indication: INFECTION
     Dosage: UNK UNK, QD
     Route: 048
     Dates: start: 20170327, end: 20170516

REACTIONS (2)
  - Rhabdomyolysis [Recovered/Resolved]
  - Liver function test abnormal [Recovered/Resolved]

NARRATIVE: CASE EVENT DATE: 20170509
